FAERS Safety Report 24146641 (Version 2)
Quarter: 2025Q3

REPORT INFORMATION
  Report Type: Report from Study
  Country: AU (occurrence: AU)
  Receive Date: 20240729
  Receipt Date: 20250724
  Transmission Date: 20251021
  Serious: Yes (Death, Hospitalization)
  Sender: NOVARTIS
  Company Number: AU-002147023-NVSC2024AU004849

PATIENT
  Age: 16 Year
  Sex: Male
  Weight: 76 kg

DRUGS (5)
  1. MEKINIST [Suspect]
     Active Substance: TRAMETINIB DIMETHYL SULFOXIDE
     Indication: Glioma
     Route: 048
     Dates: start: 20231201, end: 20231222
  2. DEXAMETHASONE [Concomitant]
     Active Substance: DEXAMETHASONE
     Indication: Neurological decompensation
     Dosage: 4 MG, TID
     Route: 065
     Dates: start: 20231218, end: 20231229
  3. ERYTHROMYCIN [Concomitant]
     Active Substance: ERYTHROMYCIN
     Indication: Acne
     Dosage: 250 MG, BID
     Route: 065
     Dates: start: 20231129, end: 20231218
  4. ISOTRETINOIN [Concomitant]
     Active Substance: ISOTRETINOIN
     Indication: Acne
     Dosage: 10 MG, TIW
     Route: 065
     Dates: start: 20231129, end: 20231218
  5. FAMOTIDINE [Concomitant]
     Active Substance: FAMOTIDINE
     Indication: Prophylaxis
     Route: 065
     Dates: start: 20231129, end: 20231229

REACTIONS (6)
  - Brain stem syndrome [Fatal]
  - Neurological decompensation [Fatal]
  - Glioma [Fatal]
  - Malignant neoplasm progression [Fatal]
  - Colitis [Recovered/Resolved]
  - Diarrhoea [Recovered/Resolved]

NARRATIVE: CASE EVENT DATE: 20231218
